FAERS Safety Report 22211763 (Version 4)
Quarter: 2023Q4

REPORT INFORMATION
  Report Type: Spontaneous
  Country: CZ (occurrence: CZ)
  Receive Date: 20230414
  Receipt Date: 20231120
  Transmission Date: 20240109
  Serious: Yes (Other)
  Sender: FDA-Public Use
  Company Number: CZ-TEVA-2023-CZ-2876654

PATIENT
  Age: 71 Year
  Sex: Male

DRUGS (8)
  1. PACLITAXEL [Suspect]
     Active Substance: PACLITAXEL
     Indication: Squamous cell carcinoma of lung
     Route: 065
     Dates: start: 2022, end: 2022
  2. PACLITAXEL [Suspect]
     Active Substance: PACLITAXEL
     Indication: Non-small cell lung cancer
  3. CARBOPLATIN [Concomitant]
     Active Substance: CARBOPLATIN
     Indication: Squamous cell carcinoma of lung
     Route: 065
     Dates: start: 2022, end: 2022
  4. CARBOPLATIN [Concomitant]
     Active Substance: CARBOPLATIN
     Indication: Non-small cell lung cancer
  5. IPILIMUMAB [Concomitant]
     Active Substance: IPILIMUMAB
     Indication: Squamous cell carcinoma of lung
     Route: 065
     Dates: start: 2022, end: 2022
  6. IPILIMUMAB [Concomitant]
     Active Substance: IPILIMUMAB
     Indication: Non-small cell lung cancer
  7. NIVOLUMAB [Concomitant]
     Active Substance: NIVOLUMAB
     Indication: Squamous cell carcinoma of lung
     Route: 065
     Dates: start: 2022, end: 2022
  8. NIVOLUMAB [Concomitant]
     Active Substance: NIVOLUMAB
     Indication: Non-small cell lung cancer

REACTIONS (2)
  - Dermatitis allergic [Recovered/Resolved]
  - Lichen planus [Recovered/Resolved]

NARRATIVE: CASE EVENT DATE: 20220101
